FAERS Safety Report 8068756-7 (Version None)
Quarter: 2012Q1

REPORT INFORMATION
  Report Type: 
  Country: None (occurrence: None)
  Receive Date: 20120124
  Receipt Date: 20111202
  Transmission Date: 20120608
  Serious: No
  Sender: FDA-Public Use
  Company Number: US-AMGEN-USASP2011048054

PATIENT
  Sex: Female
  Weight: 92.971 kg

DRUGS (7)
  1. PROLIA [Suspect]
     Indication: PRODUCT USED FOR UNKNOWN INDICATION
     Dosage: 60 MG, Q6MO
     Route: 058
     Dates: start: 20110301
  2. NAPROXEN [Concomitant]
     Dosage: 500 MG, UNK
  3. MISOPROSTOL [Concomitant]
     Dosage: 100 MUG, UNK
  4. PLAQUENIL [Concomitant]
     Dosage: 200 MG, UNK
  5. FLEXERIL [Concomitant]
  6. TRAZODONE HCL [Concomitant]
  7. PROLIA [Suspect]
     Dosage: 60 MG, Q6MO
     Route: 058
     Dates: start: 20110906

REACTIONS (2)
  - INCREASED TENDENCY TO BRUISE [None]
  - SKIN FRAGILITY [None]
